FAERS Safety Report 25228868 (Version 1)
Quarter: 2025Q2

REPORT INFORMATION
  Report Type: Spontaneous
  Country: BG (occurrence: BG)
  Receive Date: 20250423
  Receipt Date: 20250423
  Transmission Date: 20250716
  Serious: Yes (Hospitalization, Other)
  Sender: GLAND PHARMA LTD
  Company Number: BG-GLANDPHARMA-BG-2025GLNLIT01046

PATIENT
  Age: 62 Year
  Sex: Male

DRUGS (6)
  1. CISPLATIN [Suspect]
     Active Substance: CISPLATIN
     Indication: Squamous cell carcinoma of the oral cavity
     Route: 042
  2. FLUOROURACIL [Suspect]
     Active Substance: FLUOROURACIL
     Indication: Squamous cell carcinoma of the oral cavity
     Route: 065
  3. CETUXIMAB [Suspect]
     Active Substance: CETUXIMAB
     Indication: Squamous cell carcinoma of the oral cavity
     Route: 042
  4. SODIUM CHLORIDE [Concomitant]
     Active Substance: SODIUM CHLORIDE
     Route: 065
  5. LIPEGFILGRASTIM [Concomitant]
     Active Substance: LIPEGFILGRASTIM
     Route: 058
  6. TRIESTER GLYCEROL OXIDE [Concomitant]
     Indication: Wound
     Route: 065

REACTIONS (2)
  - Arterial thrombosis [Unknown]
  - Product use in unapproved indication [Unknown]
